FAERS Safety Report 7559704-4 (Version None)
Quarter: 2011Q2

REPORT INFORMATION
  Report Type: 
  Country: None (occurrence: None)
  Receive Date: 20110617
  Receipt Date: 20110617
  Transmission Date: 20111010
  Serious: No
  Sender: FDA-Public Use
  Company Number: None

PATIENT
  Sex: Male
  Weight: 99 kg

DRUGS (1)
  1. BEVACIZUMAB 400MG 25MG/ML GENENTECH [Suspect]
     Indication: GLIOBLASTOMA
     Dosage: 1000MG EVERY 2 WEEKS IV DRIP
     Route: 041
     Dates: start: 20100924, end: 20110616

REACTIONS (2)
  - STOMATITIS [None]
  - TONGUE GEOGRAPHIC [None]
